FAERS Safety Report 8935645 (Version 4)
Quarter: 2013Q1

REPORT INFORMATION
  Report Type: Spontaneous
  Country: JP (occurrence: JP)
  Receive Date: 20121130
  Receipt Date: 20130125
  Transmission Date: 20140127
  Serious: Yes (Hospitalization)
  Sender: FDA-Public Use
  Company Number: JP-JNJFOC-20120513977

PATIENT
  Age: 22 None
  Sex: Male
  Weight: 53 kg

DRUGS (8)
  1. REMICADE [Suspect]
     Indication: COLITIS ULCERATIVE
     Dosage: FIRST DOSE
     Route: 042
     Dates: start: 20120118
  2. REMICADE [Suspect]
     Indication: COLITIS ULCERATIVE
     Dosage: TOTAL NUMBER OF INFUSIONS 4, FOURTH DOSE
     Route: 042
     Dates: start: 20120425
  3. IMURAN [Suspect]
     Indication: COLITIS ULCERATIVE
     Route: 048
     Dates: start: 20120328, end: 20120508
  4. PENTASA [Concomitant]
     Indication: COLITIS ULCERATIVE
     Route: 048
     Dates: start: 200807
  5. LACTOMIN [Concomitant]
     Indication: COLITIS ULCERATIVE
     Route: 048
     Dates: start: 200807
  6. COLONEL [Concomitant]
     Indication: COLITIS ULCERATIVE
     Route: 048
     Dates: start: 201009
  7. FERROMIA [Concomitant]
     Indication: ANAEMIA
     Route: 048
     Dates: start: 201103
  8. ISCOTIN [Concomitant]
     Indication: ANTIBIOTIC PROPHYLAXIS
     Route: 048
     Dates: start: 20120118, end: 20120508

REACTIONS (3)
  - Eosinophilic pneumonia [Recovering/Resolving]
  - Altered state of consciousness [Recovered/Resolved]
  - Dehydration [Recovered/Resolved]
